FAERS Safety Report 19937966 (Version 1)
Quarter: 2021Q4

REPORT INFORMATION
  Report Type: Spontaneous
  Country: US (occurrence: US)
  Receive Date: 20211011
  Receipt Date: 20211011
  Transmission Date: 20220304
  Serious: No
  Sender: FDA-Public Use
  Company Number: US-ROCHE-2834744

PATIENT
  Age: 11 Year
  Sex: Female
  Weight: 60 kg

DRUGS (1)
  1. EVRYSDI [Suspect]
     Active Substance: RISDIPLAM
     Indication: Spinal muscular atrophy
     Dosage: 5 MG/6.6 ML ;ONGOING: YES
     Route: 048
     Dates: start: 20210122

REACTIONS (2)
  - Abdominal pain upper [Recovered/Resolved]
  - Diarrhoea [Recovered/Resolved]

NARRATIVE: CASE EVENT DATE: 20210501
